FAERS Safety Report 13642818 (Version 1)
Quarter: 2017Q2

REPORT INFORMATION
  Report Type: Spontaneous
  Country: US (occurrence: US)
  Receive Date: 20170612
  Receipt Date: 20170612
  Transmission Date: 20170830
  Serious: No
  Sender: FDA-Public Use
  Company Number: US-SEPTODONT-201703867

PATIENT
  Age: 46 Year
  Sex: Female
  Weight: 86 kg

DRUGS (1)
  1. SEPTOCAINE AND EPINEPHRINE [Suspect]
     Active Substance: ARTICAINE HYDROCHLORIDE\EPINEPHRINE BITARTRATE
     Indication: LOCAL ANAESTHESIA
     Dosage: ADMINISTERED VIA THE STANDARD INFERIOR ALVEOLAR NERVE BLOCK
     Route: 004

REACTIONS (7)
  - Eyelid oedema [Recovered/Resolved]
  - Erythema of eyelid [Recovered/Resolved]
  - Oral discomfort [Recovered/Resolved]
  - Erythema [Recovered/Resolved]
  - Abnormal sensation in eye [Recovered/Resolved]
  - Pallor [Recovered/Resolved]
  - Eyelid irritation [Recovered/Resolved]
